FAERS Safety Report 4379730-6 (Version None)
Quarter: 2004Q2

REPORT INFORMATION
  Report Type: 
  Country: None (occurrence: None)
  Receive Date: 20040617
  Receipt Date: 20031014
  Transmission Date: 20050107
  Serious: Yes (Hospitalization)
  Sender: FDA-Public Use
  Company Number: JP-GLAXOSMITHKLINE-B0311816A

PATIENT
  Age: 72 Year
  Sex: Male
  Weight: 38 kg

DRUGS (9)
  1. PAXIL [Suspect]
     Indication: DEPRESSION
     Route: 048
     Dates: start: 20020220, end: 20020320
  2. CLOMIPRAMINE HCL [Concomitant]
     Dosage: 30MG PER DAY
     Route: 065
     Dates: start: 20020320, end: 20020408
  3. TIAPRIDE HYDROCHLORIDE [Concomitant]
     Dosage: 50MG PER DAY
     Route: 065
     Dates: start: 20020408
  4. MIANSERIN HYDROCHLORIDE [Concomitant]
     Indication: DEPRESSION
     Dosage: 20MG PER DAY
     Route: 065
  5. FAMOTIDINE [Concomitant]
     Indication: GASTRITIS
     Dosage: 40MG PER DAY
     Route: 048
     Dates: start: 20020127, end: 20020401
  6. SULPIRIDE [Concomitant]
     Indication: DEPRESSION
     Dosage: 100MG PER DAY
     Route: 048
     Dates: start: 20020108, end: 20020401
  7. HYDROXYZINE PAMOATE [Concomitant]
     Indication: INSOMNIA
     Dosage: 25MG PER DAY
     Route: 048
     Dates: start: 20020108, end: 20020321
  8. TAMSULOSIN HYDROCHLORIDE [Concomitant]
     Indication: BENIGN PROSTATIC HYPERPLASIA
     Dosage: .2MG PER DAY
     Route: 048
     Dates: start: 20020227, end: 20020321
  9. HALOPERIDOL [Concomitant]
     Indication: AGITATION
     Dosage: .325MG PER DAY
     Route: 048
     Dates: start: 20020226, end: 20020227

REACTIONS (10)
  - ANOREXIA [None]
  - DECREASED ACTIVITY [None]
  - DELIRIUM [None]
  - DISORIENTATION [None]
  - HYPONATRAEMIA [None]
  - INAPPROPRIATE ANTIDIURETIC HORMONE SECRETION [None]
  - MALAISE [None]
  - MARKEDLY REDUCED DIETARY INTAKE [None]
  - MUTISM [None]
  - SPEECH DISORDER [None]
